FAERS Safety Report 7813903-2 (Version None)
Quarter: 2011Q4

REPORT INFORMATION
  Report Type: 
  Country: None (occurrence: None)
  Receive Date: 20111014
  Receipt Date: 20111011
  Transmission Date: 20120403
  Serious: Yes (Other)
  Sender: FDA-Public Use
  Company Number: US-PFIZER INC-2011222478

PATIENT
  Sex: Female
  Weight: 48 kg

DRUGS (3)
  1. DILANTIN [Suspect]
     Indication: GRAND MAL CONVULSION
     Dosage: 100 MG, 1X/DAY
     Route: 048
     Dates: start: 19570101
  2. MEBARAL [Concomitant]
     Indication: GRAND MAL CONVULSION
     Dosage: UNK
     Dates: start: 19780101
  3. PHENOBARBITAL [Concomitant]
     Indication: GRAND MAL CONVULSION
     Dosage: UNK
     Dates: start: 19570101, end: 19710101

REACTIONS (1)
  - HYPOTHYROIDISM [None]
